FAERS Safety Report 8910054 (Version 1)
Quarter: 2012Q4

REPORT INFORMATION
  Report Type: 
  Country: US (occurrence: US)
  Receive Date: 20121115
  Receipt Date: 20121115
  Transmission Date: 20130627
  Serious: Yes (Death)
  Sender: FDA-Public Use
  Company Number: US-ABBOTT-12P-163-1007981-00

PATIENT
  Sex: Male

DRUGS (3)
  1. VICODIN [Suspect]
     Indication: PRODUCT USED FOR UNKNOWN INDICATION
  2. VENTOLIN HFA [Suspect]
     Indication: PRODUCT USED FOR UNKNOWN INDICATION
     Dates: start: 20100614, end: 20111124
  3. ADVAIR [Suspect]
     Dates: start: 20100614, end: 20111124

REACTIONS (3)
  - Overdose [Fatal]
  - Arteriosclerosis [Fatal]
  - Hypertensive heart disease [Fatal]
